FAERS Safety Report 8727155 (Version 2)
Quarter: 2012Q4

REPORT INFORMATION
  Report Type: Report from Study
  Country: KR (occurrence: KR)
  Receive Date: 20120816
  Receipt Date: 20120920
  Transmission Date: 20130627
  Serious: Yes (Other)
  Sender: FDA-Public Use
  Company Number: KR-PFIZER INC-2012198470

PATIENT
  Age: 73 Year
  Sex: Male

DRUGS (3)
  1. CISPLATIN [Suspect]
     Indication: HEPATIC NEOPLASM MALIGNANT NON-RESECTABLE
     Dosage: 60 mg/m2, cyclic
     Route: 013
  2. EPIRUBICIN HCL [Suspect]
     Dosage: 50 mg/m2, cyclic
     Route: 013
  3. LIPIODOL [Concomitant]
     Dosage: UNK

REACTIONS (1)
  - Hepatitis C [Unknown]
